FAERS Safety Report 11355227 (Version 2)
Quarter: 2015Q3

REPORT INFORMATION
  Report Type: Report from Study
  Country: CR (occurrence: CR)
  Receive Date: 20150807
  Receipt Date: 20150819
  Transmission Date: 20151125
  Serious: No
  Sender: FDA-Public Use
  Company Number: PHHY2015CR094595

PATIENT
  Age: 69 Year
  Sex: Female
  Weight: 76.19 kg

DRUGS (2)
  1. SANDOSTATIN LAR DEPOT [Suspect]
     Active Substance: OCTREOTIDE ACETATE
     Indication: METASTASES TO LIVER
     Dosage: 1 DF, QMO
     Route: 065
  2. IRBESARTAN. [Concomitant]
     Active Substance: IRBESARTAN
     Indication: HYPERTENSION
     Dosage: 150 MG, QD
     Route: 065

REACTIONS (6)
  - Sticky skin [Unknown]
  - Erythema [Unknown]
  - Diarrhoea [Unknown]
  - Off label use [Unknown]
  - Feeling hot [Unknown]
  - Visual impairment [Unknown]
